FAERS Safety Report 6930932-1 (Version None)
Quarter: 2010Q3

REPORT INFORMATION
  Report Type: 
  Country: None (occurrence: None)
  Receive Date: 20100817
  Receipt Date: 20100817
  Transmission Date: 20110219
  Serious: Yes (Other)
  Sender: FDA-Public Use
  Company Number: None

PATIENT
  Sex: Female
  Weight: 52.3 kg

DRUGS (1)
  1. YAZ [Suspect]
     Indication: ORAL CONTRACEPTION
     Dosage: 1 TABLET DAILY BY MOUTH; LAST 2 YEARS
     Route: 048

REACTIONS (9)
  - ABDOMINAL DISTENSION [None]
  - DECREASED APPETITE [None]
  - DIZZINESS [None]
  - HEADACHE [None]
  - INSOMNIA [None]
  - MOOD ALTERED [None]
  - MUSCLE SPASMS [None]
  - NAUSEA [None]
  - SYNCOPE [None]
